FAERS Safety Report 4365539-6 (Version None)
Quarter: 2004Q2

REPORT INFORMATION
  Report Type: 
  Country: None (occurrence: None)
  Receive Date: 20040526
  Receipt Date: 20040514
  Transmission Date: 20050107
  Serious: Yes (Death, Hospitalization)
  Sender: FDA-Public Use
  Company Number: NO-GLAXOSMITHKLINE-B0333009A

PATIENT
  Age: 81 Year
  Sex: Male

DRUGS (6)
  1. SOTACOR [Suspect]
     Dosage: 80MG TWICE PER DAY
     Route: 048
     Dates: start: 20031223, end: 20031224
  2. ISOPTIN RETARD [Suspect]
     Route: 048
  3. LANOXIN [Suspect]
     Dosage: .05MG PER DAY
  4. CARDURAN [Concomitant]
  5. MUCOMYST [Concomitant]
  6. COZAAR [Concomitant]

REACTIONS (3)
  - BRADYCARDIA [None]
  - DRUG INTERACTION [None]
  - THERAPEUTIC AGENT TOXICITY [None]
